FAERS Safety Report 5786335-9 (Version None)
Quarter: 2008Q2

REPORT INFORMATION
  Report Type: 
  Country: None (occurrence: None)
  Receive Date: 20080624
  Receipt Date: 20080612
  Transmission Date: 20081010
  Serious: Yes (Hospitalization)
  Sender: FDA-Public Use
  Company Number: PL-PFIZER INC-2008049474

PATIENT
  Sex: Female
  Weight: 60 kg

DRUGS (4)
  1. SULFASALAZINE [Suspect]
     Indication: JUVENILE ARTHRITIS
     Route: 048
  2. METHYLPREDNISOLONE [Concomitant]
     Dosage: DAILY DOSE:32MG
     Route: 048
  3. KALDYUM [Concomitant]
     Route: 048
  4. FOLIC ACID [Concomitant]
     Route: 048

REACTIONS (1)
  - SKIN INFLAMMATION [None]
